FAERS Safety Report 22226920 (Version 2)
Quarter: 2023Q2

REPORT INFORMATION
  Report Type: Spontaneous
  Country: NL (occurrence: NL)
  Receive Date: 20230419
  Receipt Date: 20230505
  Transmission Date: 20230722
  Serious: Yes (Hospitalization)
  Sender: FDA-Public Use
  Company Number: NL-PFIZER INC-PV202300053286

PATIENT
  Age: 9 Year
  Sex: Male

DRUGS (5)
  1. ARIPIPRAZOLE [Suspect]
     Active Substance: ARIPIPRAZOLE
     Indication: Autism spectrum disorder
     Dosage: 2 MILLIGRAM
     Route: 048
     Dates: start: 20230202
  2. GRANISETRON [Suspect]
     Active Substance: GRANISETRON
     Indication: Nausea
     Dosage: 1 MILLIGRAM
     Route: 048
     Dates: start: 20230211, end: 20230320
  3. GRANISETRON [Suspect]
     Active Substance: GRANISETRON
     Dosage: 1 MILLIGRAM
     Route: 048
     Dates: start: 20230318
  4. METOCLOPRAMIDE [Suspect]
     Active Substance: METOCLOPRAMIDE
     Indication: Nausea
     Dosage: 12 MILLIGRAM (A.N)
     Route: 048
     Dates: start: 20230301
  5. CRIZOTINIB [Suspect]
     Active Substance: CRIZOTINIB
     Indication: Neoplasm malignant
     Dosage: 440 MILLIGRAM/SQ. METER, ONCE A DAY (220 MILLIGRAM/SQ. METER, BID (220 MG/M2 2X/DAY)
     Route: 048
     Dates: start: 20230211

REACTIONS (2)
  - Constipation [Recovered/Resolved]
  - Abdominal pain [Recovered/Resolved]

NARRATIVE: CASE EVENT DATE: 20230317
